FAERS Safety Report 5755571-X (Version None)
Quarter: 2008Q2

REPORT INFORMATION
  Report Type: 
  Country: None (occurrence: None)
  Receive Date: 20080602
  Receipt Date: 20080521
  Transmission Date: 20081010
  Serious: Yes (Disabling)
  Sender: FDA-Public Use
  Company Number: US-MERCK-0712USA02223

PATIENT
  Age: 57 Year
  Sex: Female

DRUGS (2)
  1. FOSAMAX [Suspect]
     Indication: OSTEOPENIA
     Route: 048
     Dates: start: 20011101
  2. FOSAMAX [Suspect]
     Indication: ARTHRITIS
     Route: 048
     Dates: start: 20011101

REACTIONS (7)
  - ANXIETY [None]
  - DEPRESSION [None]
  - MENTAL DISORDER [None]
  - PANIC ATTACK [None]
  - PHYSICAL DISABILITY [None]
  - RESORPTION BONE INCREASED [None]
  - TOOTH LOSS [None]
